FAERS Safety Report 21085974 (Version 2)
Quarter: 2023Q1

REPORT INFORMATION
  Report Type: Spontaneous
  Country: JP (occurrence: JP)
  Receive Date: 20220715
  Receipt Date: 20230306
  Transmission Date: 20230418
  Serious: Yes (Life-Threatening, Hospitalization, Other)
  Sender: FDA-Public Use
  Company Number: JP-ONO-2022JP017498

PATIENT
  Age: 54 Year
  Sex: Male
  Weight: 81.3 kg

DRUGS (7)
  1. KYPROLIS [Suspect]
     Active Substance: CARFILZOMIB
     Indication: Plasma cell myeloma
     Dosage: 56 MG/M2
     Route: 042
     Dates: start: 202205, end: 202207
  2. ISATUXIMAB [Concomitant]
     Active Substance: ISATUXIMAB
     Indication: Plasma cell myeloma
     Dosage: UNK
     Route: 065
     Dates: start: 202205
  3. DEXAMETHASONE [Concomitant]
     Active Substance: DEXAMETHASONE
     Indication: Plasma cell myeloma
     Dosage: UNK
     Route: 065
     Dates: start: 202205
  4. RABEPRAZOLE SODIUM [Concomitant]
     Active Substance: RABEPRAZOLE SODIUM
     Indication: Prophylaxis
     Dosage: 10 MG, EVERYDAY
     Route: 048
     Dates: start: 20211215
  5. ACYCLOVIR [Concomitant]
     Active Substance: ACYCLOVIR
     Indication: Prophylaxis
     Dosage: 200 MG, EVERYDAY
     Route: 048
     Dates: start: 20211215
  6. SULFAMETHOXAZOLE\TRIMETHOPRIM [Concomitant]
     Active Substance: SULFAMETHOXAZOLE\TRIMETHOPRIM
     Indication: Prophylaxis
     Dosage: UNK, EVERYDAY
     Route: 048
     Dates: start: 20211215
  7. URSODIOL [Concomitant]
     Active Substance: URSODIOL
     Dosage: 100 MG, Q8H
     Route: 048
     Dates: start: 20211223

REACTIONS (3)
  - Ventricular fibrillation [Recovered/Resolved]
  - Atrial fibrillation [Recovering/Resolving]
  - Visual field defect [Recovered/Resolved]

NARRATIVE: CASE EVENT DATE: 20220501
